FAERS Safety Report 5908094-9 (Version None)
Quarter: 2008Q4

REPORT INFORMATION
  Report Type: 
  Country: None (occurrence: None)
  Receive Date: 20081003
  Receipt Date: 20080924
  Transmission Date: 20090506
  Serious: Yes (Other)
  Sender: FDA-Public Use
  Company Number: SE-PFIZER INC-2008080735

PATIENT
  Sex: Female

DRUGS (2)
  1. TOLTERODINE TARTRATE [Suspect]
     Indication: URINARY INCONTINENCE
     Dates: start: 20070930, end: 20071010
  2. TOLTERODINE TARTRATE [Suspect]
     Indication: ENURESIS

REACTIONS (1)
  - STRABISMUS [None]
